FAERS Safety Report 5734684-2 (Version None)
Quarter: 2008Q2

REPORT INFORMATION
  Report Type: 
  Country: None (occurrence: None)
  Receive Date: 20080512
  Receipt Date: 20080509
  Transmission Date: 20081010
  Serious: Yes (Other)
  Sender: FDA-Public Use
  Company Number: A0675237A

PATIENT
  Sex: Female

DRUGS (3)
  1. ALLI [Suspect]
     Indication: WEIGHT LOSS DIET
     Route: 048
     Dates: start: 20070601
  2. BIRTH CONTROL PILL [Suspect]
     Indication: CONTRACEPTION
     Route: 048
     Dates: start: 19970101
  3. VITAMINS [Concomitant]

REACTIONS (3)
  - DRUG EXPOSURE DURING PREGNANCY [None]
  - DRUG INTERACTION [None]
  - UNINTENDED PREGNANCY [None]
